FAERS Safety Report 9785987 (Version 5)
Quarter: 2014Q1

REPORT INFORMATION
  Report Type: Report from Study
  Country: BE (occurrence: BE)
  Receive Date: 20131227
  Receipt Date: 20140313
  Transmission Date: 20141002
  Serious: Yes (Hospitalization)
  Sender: FDA-Public Use
  Company Number: BE-BAYER-2013-126899

PATIENT
  Age: 84 Year
  Sex: Male
  Weight: 59 kg

DRUGS (5)
  1. REGORAFENIB [Suspect]
     Indication: COLORECTAL CANCER
     Dosage: 160 MG, QD
     Route: 048
     Dates: start: 20131001, end: 20131014
  2. TENORMIN [Concomitant]
     Indication: HYPERTENSION
     Dosage: 50 MG, QD
     Route: 048
     Dates: start: 2009
  3. CORVATON [Concomitant]
     Indication: CARDIOVASCULAR EVENT PROPHYLAXIS
     Dosage: 2 MG, TID
     Route: 048
     Dates: start: 2009
  4. ASAFLOW [Concomitant]
     Indication: CARDIOVASCULAR EVENT PROPHYLAXIS
     Dosage: 80 MG
     Route: 048
     Dates: start: 2009
  5. FINASTERIDE [Concomitant]
     Indication: BENIGN PROSTATIC HYPERPLASIA
     Dosage: 5MG
     Route: 048
     Dates: start: 201308

REACTIONS (2)
  - Asthenia [Recovered/Resolved]
  - Pyrexia [Recovered/Resolved]
